FAERS Safety Report 12400307 (Version 3)
Quarter: 2016Q3

REPORT INFORMATION
  Report Type: Spontaneous
  Country: US (occurrence: US)
  Receive Date: 20160525
  Receipt Date: 20160808
  Transmission Date: 20161109
  Serious: Yes (Hospitalization, Other)
  Sender: FDA-Public Use
  Company Number: US-AMGEN-USASP2016064533

PATIENT
  Age: 74 Year
  Sex: Female
  Weight: 88.89 kg

DRUGS (13)
  1. PREMARIN [Concomitant]
     Active Substance: ESTROGENS, CONJUGATED
     Indication: BLOOD COUNT ABNORMAL
     Dosage: 1.25 MG, QD
     Dates: start: 1982
  2. VYTORIN [Concomitant]
     Active Substance: EZETIMIBE\SIMVASTATIN
     Indication: BLOOD CHOLESTEROL INCREASED
     Dosage: 10-40 MG QD
  3. FOLIC ACID. [Concomitant]
     Active Substance: FOLIC ACID
     Dosage: UNK UNK, QD
  4. VITAMIN E                          /00110501/ [Concomitant]
     Active Substance: TOCOPHEROL
     Dosage: UNK UNK, QD
  5. TOPROL XL [Concomitant]
     Active Substance: METOPROLOL SUCCINATE
     Indication: CARDIAC DISORDER
     Dosage: 100 MG, QD
     Dates: start: 2002
  6. NIFEDIPINE. [Concomitant]
     Active Substance: NIFEDIPINE
     Indication: HYPERTENSION
     Dosage: 30 MG, QD
     Dates: start: 201603
  7. RANEXA [Concomitant]
     Active Substance: RANOLAZINE
     Indication: CARDIAC DISORDER
     Dosage: 500 MG, BID
  8. SERTRALINE [Concomitant]
     Active Substance: SERTRALINE HYDROCHLORIDE
     Indication: DEPRESSION
     Dosage: 25 MG, BID
     Dates: start: 201512
  9. ISOSORBIDE. [Concomitant]
     Active Substance: ISOSORBIDE
     Indication: CARDIAC DISORDER
     Dosage: 30 MG, QD
     Dates: start: 201602
  10. PROCRIT [Suspect]
     Active Substance: ERYTHROPOIETIN
     Indication: BLOOD DISORDER
     Dosage: 40000 UNIT, QWK
     Route: 042
     Dates: start: 1991
  11. FERROUS SULFATE. [Concomitant]
     Active Substance: FERROUS SULFATE
     Indication: BLOOD COUNT ABNORMAL
     Dosage: 325 MG, BID
     Dates: start: 2014
  12. METFORMIN [Concomitant]
     Active Substance: METFORMIN HYDROCHLORIDE
     Indication: TYPE 2 DIABETES MELLITUS
     Dosage: 500 MG, BID
     Dates: start: 2000
  13. VITAMIN D                          /00107901/ [Concomitant]
     Active Substance: ERGOCALCIFEROL
     Dosage: UNK UNK, QD

REACTIONS (8)
  - Transfusion [Not Recovered/Not Resolved]
  - Incorrect product storage [Unknown]
  - Loss of consciousness [Not Recovered/Not Resolved]
  - Transient ischaemic attack [Recovered/Resolved]
  - Aphasia [Recovering/Resolving]
  - Cerebral thrombosis [Recovered/Resolved]
  - Unevaluable event [Unknown]
  - Drug dose omission [Not Recovered/Not Resolved]

NARRATIVE: CASE EVENT DATE: 201602
